FAERS Safety Report 19951223 (Version 1)
Quarter: 2021Q4

REPORT INFORMATION
  Report Type: Spontaneous
  Country: RU (occurrence: RU)
  Receive Date: 20211013
  Receipt Date: 20211013
  Transmission Date: 20220303
  Serious: Yes (Death, Hospitalization)
  Sender: FDA-Public Use
  Company Number: RU-FRESENIUS KABI-FK202110964

PATIENT
  Age: 27 Year
  Sex: Female

DRUGS (4)
  1. CARBOPLATIN [Suspect]
     Active Substance: CARBOPLATIN
     Indication: Cervix carcinoma stage III
     Dosage: 2 CYCLES OF POLYCHEMOTHERAPY
     Route: 065
     Dates: start: 201608, end: 201609
  2. PACLITAXEL [Suspect]
     Active Substance: PACLITAXEL
     Indication: Cervix carcinoma stage III
     Dosage: 2 CYCLES OF POLYCHEMOTHERAPY
     Route: 065
     Dates: start: 201608, end: 201609
  3. CISPLATIN [Suspect]
     Active Substance: CISPLATIN
     Indication: Cervix carcinoma stage III
     Dosage: 50 MG/WEEK FOR 3 WEEKS (100 MG\WEEK)
     Route: 065
     Dates: start: 20150715, end: 20150902
  4. CISPLATIN [Suspect]
     Active Substance: CISPLATIN
     Dosage: 150 MG (2 COURSES)
     Route: 065
     Dates: start: 20150715, end: 20150902

REACTIONS (3)
  - Anaemia [Unknown]
  - Thrombocytosis [Unknown]
  - Leukopenia [Unknown]
